FAERS Safety Report 4983020-8 (Version None)
Quarter: 2006Q2

REPORT INFORMATION
  Report Type: 
  Country: None (occurrence: None)
  Receive Date: 20060420
  Receipt Date: 20060407
  Transmission Date: 20061013
  Serious: Yes (Death, Life-Threatening, Other)
  Sender: FDA-Public Use
  Company Number: 2006049214

PATIENT
  Age: 59 Year
  Sex: Male

DRUGS (1)
  1. ZITHROMAX [Suspect]
     Indication: BRONCHITIS
     Dates: start: 20040720

REACTIONS (20)
  - ASCITES [None]
  - ATRIAL FIBRILLATION [None]
  - BRONCHOPNEUMONIA [None]
  - CARDIOMEGALY [None]
  - CHOLESTASIS [None]
  - COAGULOPATHY [None]
  - HAEMODIALYSIS [None]
  - HAEMOPTYSIS [None]
  - HEART RATE INCREASED [None]
  - HEPATIC NECROSIS [None]
  - HEPATITIS ACUTE [None]
  - HEPATOTOXICITY [None]
  - JAUNDICE [None]
  - JOINT SWELLING [None]
  - LIVER DISORDER [None]
  - MULTI-ORGAN FAILURE [None]
  - PANCREATITIS [None]
  - PULMONARY INFARCTION [None]
  - RENAL FAILURE [None]
  - STAPHYLOCOCCAL INFECTION [None]
